FAERS Safety Report 17115948 (Version 6)
Quarter: 2021Q3

REPORT INFORMATION
  Report Type: Spontaneous
  Country: US (occurrence: US)
  Receive Date: 20191205
  Receipt Date: 20210921
  Transmission Date: 20211014
  Serious: No
  Sender: FDA-Public Use
  Company Number: US-PFIZER INC-2019524517

PATIENT
  Age: 67 Year
  Sex: Male

DRUGS (4)
  1. PROTONIX [Suspect]
     Active Substance: PANTOPRAZOLE SODIUM
     Dosage: 40 MG, UNK
  2. ALLEGRA [Concomitant]
     Active Substance: FEXOFENADINE HYDROCHLORIDE
     Dosage: UNK
  3. PROTONIX [Suspect]
     Active Substance: PANTOPRAZOLE SODIUM
     Dosage: 160 MG, DAILY
  4. PROTONIX [Suspect]
     Active Substance: PANTOPRAZOLE SODIUM
     Dosage: 40 MG, 4X/DAY

REACTIONS (8)
  - Gastrooesophageal reflux disease [Unknown]
  - Off label use [Unknown]
  - Skin atrophy [Unknown]
  - Product use issue [Unknown]
  - Sinusitis [Unknown]
  - Contusion [Unknown]
  - Drug ineffective [Unknown]
  - Cough [Unknown]
